FAERS Safety Report 5200872-7 (Version None)
Quarter: 2007Q1

REPORT INFORMATION
  Report Type: 
  Country: None (occurrence: None)
  Receive Date: 20070108
  Receipt Date: 20061229
  Transmission Date: 20070707
  Serious: Yes (Other)
  Sender: FDA-Public Use
  Company Number: PHFR2006GB03490

PATIENT
  Age: 69 Year
  Sex: Male

DRUGS (8)
  1. LIORESAL [Suspect]
     Indication: MUSCLE SPASMS
     Dosage: 10MG/DAY
     Route: 048
  2. RAMIPRIL [Concomitant]
     Indication: MYOCARDIAL ISCHAEMIA
     Dosage: 1.25
     Route: 048
  3. ISMN [Concomitant]
     Dosage: 20UG/DAY
     Route: 048
  4. ASPIRIN [Concomitant]
     Indication: HYPERCHOLESTEROLAEMIA
     Route: 048
  5. BISOPROLOL FUMARATE [Concomitant]
     Route: 048
  6. SIMVASTATIN [Concomitant]
     Route: 048
  7. DOCUSATE SODIUM W/SENNA [Concomitant]
     Route: 065
  8. TEMAZEPAM [Concomitant]
     Route: 065

REACTIONS (5)
  - CHEILITIS [None]
  - DERMATITIS [None]
  - MYOCARDIAL INFARCTION [None]
  - PARAESTHESIA [None]
  - PRURITUS [None]
